FAERS Safety Report 19430820 (Version 1)
Quarter: 2021Q2

REPORT INFORMATION
  Report Type: Spontaneous
  Country: US (occurrence: US)
  Receive Date: 20210617
  Receipt Date: 20210617
  Transmission Date: 20210717
  Serious: Yes (Hospitalization, Disabling)
  Sender: FDA-Public Use
  Company Number: US-JACOBUS PHARMACEUTICAL COMPANY, INC.-2112837

PATIENT
  Age: 78 Year
  Sex: Male

DRUGS (25)
  1. PREDNISONE. [Concomitant]
     Active Substance: PREDNISONE
  2. SPIRIVA RESPIMAT [Concomitant]
     Active Substance: TIOTROPIUM BROMIDE
  3. MORPHINE SULFATE. [Concomitant]
     Active Substance: MORPHINE SULFATE
  4. KEPPRA [Concomitant]
     Active Substance: LEVETIRACETAM
  5. LASIX [Concomitant]
     Active Substance: FUROSEMIDE
  6. ALLOPURINOL. [Concomitant]
     Active Substance: ALLOPURINOL
  7. FLONASE [Concomitant]
     Active Substance: FLUTICASONE PROPIONATE
  8. FLAXSEED [Concomitant]
     Active Substance: FLAX SEED
  9. PROTONIX [Concomitant]
     Active Substance: PANTOPRAZOLE SODIUM
  10. VERAPAMIL [Concomitant]
     Active Substance: VERAPAMIL HYDROCHLORIDE
  11. VITAMIN C [Concomitant]
     Active Substance: ASCORBIC ACID
  12. DOCUSATE SODIUM. [Concomitant]
     Active Substance: DOCUSATE SODIUM
  13. TIMOLOL MALEATE. [Concomitant]
     Active Substance: TIMOLOL MALEATE
  14. ATORVASTATIN CALCIUM. [Concomitant]
     Active Substance: ATORVASTATIN CALCIUM
  15. INSULIN LISPRO [Concomitant]
     Active Substance: INSULIN LISPRO
  16. POTASSIUM CHLORIDE. [Concomitant]
     Active Substance: POTASSIUM CHLORIDE
  17. MULTIVITAMIN [Concomitant]
     Active Substance: VITAMINS
  18. LANTUS [Concomitant]
     Active Substance: INSULIN GLARGINE
  19. RUZURGI [Suspect]
     Active Substance: AMIFAMPRIDINE
     Indication: MYASTHENIC SYNDROME
     Route: 048
     Dates: start: 20200404
  20. ERYTHROMYCIN. [Concomitant]
     Active Substance: ERYTHROMYCIN
  21. ASPIRIN. [Concomitant]
     Active Substance: ASPIRIN
  22. MIRALAX [Concomitant]
     Active Substance: POLYETHYLENE GLYCOL 3350
  23. IRON [Concomitant]
     Active Substance: IRON
  24. PRESERVISION AREDS [Concomitant]
     Active Substance: MINERALS\VITAMINS
  25. VITAMIN D [Concomitant]
     Active Substance: VITAMIN D NOS

REACTIONS (3)
  - Femur fracture [Recovering/Resolving]
  - Fracture treatment [Recovering/Resolving]
  - Pain [Recovering/Resolving]
